FAERS Safety Report 12760544 (Version 6)
Quarter: 2018Q2

REPORT INFORMATION
  Report Type: Report from Study
  Country: None (occurrence: NL)
  Receive Date: 20160919
  Receipt Date: 20180403
  Transmission Date: 20180711
  Serious: Yes (Hospitalization, Other)
  Sender: FDA-Public Use
  Company Number: NL-ABBVIE-16P-114-1729806-00

PATIENT
  Sex: Male

DRUGS (3)
  1. LEVODOPA [Concomitant]
     Active Substance: LEVODOPA
     Indication: PRODUCT USED FOR UNKNOWN INDICATION
     Route: 048
  2. MIDODRINE [Concomitant]
     Active Substance: MIDODRINE
     Indication: BLOOD PRESSURE MEASUREMENT
  3. DUODOPA [Suspect]
     Active Substance: CARBIDOPA\LEVODOPA
     Indication: PARKINSON^S DISEASE
     Dosage: MD: 7.5CD: 1.7 ED: 3.0
     Route: 050
     Dates: start: 20150129

REACTIONS (31)
  - Cognitive disorder [Not Recovered/Not Resolved]
  - Reduced facial expression [Not Recovered/Not Resolved]
  - Gait disturbance [Recovering/Resolving]
  - On and off phenomenon [Not Recovered/Not Resolved]
  - Confusional state [Not Recovered/Not Resolved]
  - Freezing phenomenon [Not Recovered/Not Resolved]
  - Restlessness [Recovering/Resolving]
  - Weight decreased [Recovered/Resolved]
  - Syncope [Not Recovered/Not Resolved]
  - Speech disorder [Not Recovered/Not Resolved]
  - Hyperhidrosis [Not Recovered/Not Resolved]
  - Blood pressure increased [Unknown]
  - Diarrhoea [Recovered/Resolved]
  - Mental impairment [Not Recovered/Not Resolved]
  - Loss of personal independence in daily activities [Not Recovered/Not Resolved]
  - Dizziness [Recovering/Resolving]
  - General physical health deterioration [Not Recovered/Not Resolved]
  - Hypersomnia [Recovered/Resolved]
  - Balance disorder [Not Recovered/Not Resolved]
  - Orthostatic hypotension [Recovering/Resolving]
  - Mobility decreased [Not Recovered/Not Resolved]
  - Initial insomnia [Not Recovered/Not Resolved]
  - Hallucination [Recovering/Resolving]
  - Hypotension [Not Recovered/Not Resolved]
  - Fatigue [Not Recovered/Not Resolved]
  - Loss of consciousness [Not Recovered/Not Resolved]
  - Fall [Not Recovered/Not Resolved]
  - Heart rate increased [Not Recovered/Not Resolved]
  - Muscular weakness [Not Recovered/Not Resolved]
  - Nightmare [Not Recovered/Not Resolved]
  - Disorientation [Not Recovered/Not Resolved]
